FAERS Safety Report 18349593 (Version 2)
Quarter: 2020Q4

REPORT INFORMATION
  Report Type: Spontaneous
  Country: FR (occurrence: FR)
  Receive Date: 20201006
  Receipt Date: 20201109
  Transmission Date: 20210114
  Serious: Yes (Other)
  Sender: FDA-Public Use
  Company Number: FR-JNJFOC-20200933984

PATIENT
  Age: 94 Year
  Sex: Female

DRUGS (6)
  1. DUROGESIC [Suspect]
     Active Substance: FENTANYL
     Indication: PRODUCT USED FOR UNKNOWN INDICATION
     Dosage: MICROGRAM/HOUR?1 PATCH EVERY 3 DAYS
     Route: 062
  2. DUROGESIC [Suspect]
     Active Substance: FENTANYL
  3. DUROGESIC [Suspect]
     Active Substance: FENTANYL
  4. FLECAINIDE [Concomitant]
     Active Substance: FLECAINIDE
  5. EUPRESSYL                          /00631801/ [Concomitant]
     Active Substance: URAPIDIL
  6. LASILIX                            /00032601/ [Concomitant]
     Active Substance: FUROSEMIDE

REACTIONS (3)
  - Hallucination, auditory [Unknown]
  - Manufacturing production issue [Unknown]
  - Overdose [Unknown]
